FAERS Safety Report 4523293-9 (Version None)
Quarter: 2004Q4

REPORT INFORMATION
  Report Type: 
  Country: None (occurrence: None)
  Receive Date: 20041210
  Receipt Date: 20041130
  Transmission Date: 20050328
  Serious: Yes (Hospitalization)
  Sender: FDA-Public Use
  Company Number: DE-AMGEN-UK101107

PATIENT
  Sex: Male

DRUGS (6)
  1. ARANESP [Suspect]
     Indication: RENAL FAILURE CHRONIC
     Route: 042
     Dates: start: 20040607
  2. DIOVAN [Concomitant]
     Route: 048
  3. NORVASC [Concomitant]
     Route: 048
  4. FUROSEMIDE [Concomitant]
     Route: 048
  5. ANTI-PHOSPHAT [Concomitant]
     Route: 048
  6. CALCITRIOL [Concomitant]
     Route: 048

REACTIONS (1)
  - SHUNT OCCLUSION [None]
